FAERS Safety Report 20801429 (Version 1)
Quarter: 2022Q2

REPORT INFORMATION
  Report Type: Report from Study
  Country: US (occurrence: US)
  Receive Date: 20220509
  Receipt Date: 20220509
  Transmission Date: 20220721
  Serious: Yes (Other)
  Sender: FDA-Public Use
  Company Number: US-MYLANLABS-2022M1034062

PATIENT
  Age: 80 Year
  Sex: Male

DRUGS (4)
  1. GEMCITABINE [Suspect]
     Active Substance: GEMCITABINE
     Indication: Adenocarcinoma pancreas
     Dosage: UNK (COMPLETED 6 MONTHS OF TREATMENT WITH CAPECITABINE)
     Route: 065
  2. GEMCITABINE [Suspect]
     Active Substance: GEMCITABINE
     Dosage: UNK (RECEIVED WITH PACLITAXEL)
     Route: 065
  3. PACLITAXEL [Suspect]
     Active Substance: PACLITAXEL
     Indication: Adenocarcinoma pancreas
     Dosage: UNK
     Route: 065
  4. CAPECITABINE [Suspect]
     Active Substance: CAPECITABINE
     Indication: Adenocarcinoma pancreas
     Dosage: UNK (RECEIVED WITH GEMCITABINE)
     Route: 065

REACTIONS (2)
  - Drug resistance [Unknown]
  - Drug ineffective [Unknown]
